FAERS Safety Report 9521799 (Version 2)
Quarter: 2013Q3

REPORT INFORMATION
  Report Type: Report from Study
  Country: BR (occurrence: BR)
  Receive Date: 20130913
  Receipt Date: 20130920
  Transmission Date: 20140515
  Serious: Yes (Other)
  Sender: FDA-Public Use
  Company Number: PHHY2013BR098585

PATIENT
  Age: 45 Year
  Sex: Male
  Weight: 85 kg

DRUGS (4)
  1. CARBAMAZEPINE [Suspect]
     Indication: CONVULSION
     Dosage: 200 UG, QD
     Route: 048
     Dates: start: 2000
  2. AMITRIPTYLINE [Suspect]
     Indication: DEPRESSION
     Dosage: 25 MG, QD
     Route: 048
     Dates: start: 1999
  3. SYMBICORT [Suspect]
     Indication: ASTHMA
     Dosage: UNK UKN, UNK
     Dates: start: 2003
  4. INSULIN [Suspect]
     Dosage: UNK UKN, UNK

REACTIONS (5)
  - Obstructive airways disorder [Unknown]
  - Bronchial wall thickening [Unknown]
  - Oesophagitis [Unknown]
  - Chronic sinusitis [Unknown]
  - Gastrooesophageal reflux disease [Unknown]
